FAERS Safety Report 12375619 (Version 1)
Quarter: 2016Q2

REPORT INFORMATION
  Report Type: Spontaneous
  Country: CA (occurrence: CA)
  Receive Date: 20160517
  Receipt Date: 20160517
  Transmission Date: 20160815
  Serious: Yes (Other)
  Sender: FDA-Public Use
  Company Number: CA-BAYER-2016-094046

PATIENT
  Age: 27 Year
  Sex: Female

DRUGS (1)
  1. MIRENA [Suspect]
     Active Substance: LEVONORGESTREL
     Dosage: 20 MCG/24HR, CONT
     Route: 015
     Dates: start: 201509, end: 201604

REACTIONS (5)
  - Acne [None]
  - Alopecia [Not Recovered/Not Resolved]
  - Urticaria [None]
  - Hair growth abnormal [None]
  - Suicidal ideation [None]

NARRATIVE: CASE EVENT DATE: 201511
